FAERS Safety Report 4894779-2 (Version None)
Quarter: 2006Q1

REPORT INFORMATION
  Report Type: 
  Country: None (occurrence: None)
  Receive Date: 20060130
  Receipt Date: 20060118
  Transmission Date: 20060701
  Serious: Yes (Other)
  Sender: FDA-Public Use
  Company Number: JP-NOVOPROD-250176

PATIENT
  Age: 70 Year
  Sex: Male
  Weight: 63 kg

DRUGS (4)
  1. PENFILL R CHU [Suspect]
     Indication: DIABETES MELLITUS
     Dosage: 30 IU, QD
     Route: 058
  2. HUMULIN R [Concomitant]
     Dosage: 5 IU, QD
     Route: 042
  3. TAKEPRON [Concomitant]
     Dosage: 30 MG, QD
     Route: 048
     Dates: start: 20051215
  4. HEPARIN SODIUM [Concomitant]
     Dosage: 10000 IU, UNK
     Route: 042
     Dates: start: 20051215

REACTIONS (1)
  - GRANULOCYTOPENIA [None]
